FAERS Safety Report 10932038 (Version 1)
Quarter: 2015Q1

REPORT INFORMATION
  Report Type: Spontaneous
  Country: TR (occurrence: TR)
  Receive Date: 20150319
  Receipt Date: 20150319
  Transmission Date: 20150721
  Serious: Yes (Death, Hospitalization)
  Sender: FDA-Public Use
  Company Number: TR-ELI_LILLY_AND_COMPANY-TR201503006393

PATIENT
  Age: 54 Year
  Sex: Male

DRUGS (10)
  1. BIPERIDEN [Suspect]
     Active Substance: BIPERIDEN
     Indication: IRRITABILITY
  2. HALOPERIDOL. [Suspect]
     Active Substance: HALOPERIDOL
     Indication: COMMUNICATION DISORDER
     Route: 065
  3. HALOPERIDOL. [Suspect]
     Active Substance: HALOPERIDOL
     Indication: INSOMNIA
  4. HALOPERIDOL. [Suspect]
     Active Substance: HALOPERIDOL
     Indication: IRRITABILITY
  5. RISPERIDONE. [Suspect]
     Active Substance: RISPERIDONE
     Indication: COMMUNICATION DISORDER
     Route: 065
  6. RISPERIDONE. [Suspect]
     Active Substance: RISPERIDONE
     Indication: INSOMNIA
  7. BIPERIDEN [Suspect]
     Active Substance: BIPERIDEN
     Indication: COMMUNICATION DISORDER
     Route: 065
  8. OLANZAPINE. [Suspect]
     Active Substance: OLANZAPINE
     Indication: PSYCHOTIC DISORDER
     Route: 065
  9. RISPERIDONE. [Suspect]
     Active Substance: RISPERIDONE
     Indication: IRRITABILITY
  10. BIPERIDEN [Suspect]
     Active Substance: BIPERIDEN
     Indication: INSOMNIA

REACTIONS (7)
  - Cardiac arrest [Fatal]
  - Neuroleptic malignant syndrome [Unknown]
  - Insomnia [Unknown]
  - Infection [Unknown]
  - Respiratory distress [Unknown]
  - Communication disorder [Unknown]
  - Irritability [Unknown]
